FAERS Safety Report 15790235 (Version 2)
Quarter: 2019Q1

REPORT INFORMATION
  Report Type: Spontaneous
  Country: US (occurrence: US)
  Receive Date: 20190104
  Receipt Date: 20190121
  Transmission Date: 20190417
  Serious: No
  Sender: FDA-Public Use
  Company Number: US-SA-2019SA001407

PATIENT
  Age: 50 Year
  Sex: Female

DRUGS (3)
  1. APIDRA SOLOSTAR [Suspect]
     Active Substance: INSULIN GLULISINE
     Dosage: USED THE PEN AT LUNCH AND DINNER
     Route: 065
     Dates: start: 20181231, end: 20181231
  2. APIDRA SOLOSTAR [Suspect]
     Active Substance: INSULIN GLULISINE
     Dosage: USED THE PEN AT LUNCH AND DINNER
     Route: 065
     Dates: start: 20181230, end: 20181230
  3. APIDRA SOLOSTAR [Suspect]
     Active Substance: INSULIN GLULISINE
     Indication: TYPE 1 DIABETES MELLITUS
     Dosage: 2 U, UNK
     Route: 065
     Dates: start: 20181229, end: 20181229

REACTIONS (3)
  - Device leakage [Unknown]
  - Blood glucose increased [Recovered/Resolved]
  - Product quality issue [Unknown]

NARRATIVE: CASE EVENT DATE: 20181230
